FAERS Safety Report 6852365-9 (Version None)
Quarter: 2010Q3

REPORT INFORMATION
  Report Type: 
  Country: None (occurrence: None)
  Receive Date: 20100717
  Receipt Date: 20071112
  Transmission Date: 20110219
  Serious: No
  Sender: FDA-Public Use
  Company Number: US-PFIZER INC-2007097051

PATIENT
  Sex: Female
  Weight: 48.181 kg

DRUGS (6)
  1. CHANTIX [Suspect]
     Indication: SMOKING CESSATION THERAPY
     Route: 048
     Dates: start: 20071105
  2. LASIX [Concomitant]
  3. AVAPRO [Concomitant]
     Indication: HYPERTENSION
  4. KLONOPIN [Concomitant]
  5. FISH OIL [Concomitant]
  6. CALCIUM [Concomitant]

REACTIONS (1)
  - DRUG INEFFECTIVE [None]
